FAERS Safety Report 8427158-1 (Version None)
Quarter: 2012Q2

REPORT INFORMATION
  Report Type: 
  Country: None (occurrence: None)
  Receive Date: 20120611
  Receipt Date: 20120604
  Transmission Date: 20120825
  Serious: Yes (Other)
  Sender: FDA-Public Use
  Company Number: US-UCBSA-058913

PATIENT
  Age: 56 Year
  Sex: Male

DRUGS (1)
  1. CIMZIA [Suspect]
     Route: 058
     Dates: start: 20120111

REACTIONS (2)
  - COUGH [None]
  - NASOPHARYNGITIS [None]
